FAERS Safety Report 9217310 (Version 2)
Quarter: 2013Q2

REPORT INFORMATION
  Report Type: Spontaneous
  Country: US (occurrence: US)
  Receive Date: 20130408
  Receipt Date: 20130503
  Transmission Date: 20140414
  Serious: Yes (Other)
  Sender: FDA-Public Use
  Company Number: US-PFIZER INC-2013109870

PATIENT
  Age: 24 Year
  Sex: Female

DRUGS (2)
  1. FLECTOR [Suspect]
     Indication: LIGAMENT SPRAIN
     Dosage: UNK
     Route: 062
     Dates: start: 20130405, end: 20130405
  2. FLECTOR [Suspect]
     Indication: PAIN

REACTIONS (2)
  - Anaphylactic reaction [Recovering/Resolving]
  - Rash [Recovering/Resolving]
